FAERS Safety Report 19281759 (Version 1)
Quarter: 2021Q2

REPORT INFORMATION
  Report Type: Report from Study
  Country: ES (occurrence: ES)
  Receive Date: 20210520
  Receipt Date: 20210520
  Transmission Date: 20210717
  Serious: Yes (Death, Hospitalization)
  Sender: FDA-Public Use
  Company Number: ES-TEVA-2021-ES-1911509

PATIENT
  Age: 76 Year
  Sex: Male

DRUGS (2)
  1. LAMIVUDINA (7371A) [Concomitant]
     Indication: ANTIVIRAL PROPHYLAXIS
     Dosage: 100MG
     Route: 048
     Dates: start: 2013
  2. MICOFENOLATO DE MOFETILO (7330LM) [Suspect]
     Active Substance: MYCOPHENOLATE MOFETIL
     Indication: LIVER TRANSPLANT
     Dosage: 2GM
     Route: 048
     Dates: start: 2001

REACTIONS (1)
  - Undifferentiated carcinoma of colon [Fatal]

NARRATIVE: CASE EVENT DATE: 201912
